FAERS Safety Report 7953581-5 (Version None)
Quarter: 2011Q4

REPORT INFORMATION
  Report Type: 
  Country: None (occurrence: None)
  Receive Date: 20111202
  Receipt Date: 20111128
  Transmission Date: 20120403
  Serious: Yes (Other)
  Sender: FDA-Public Use
  Company Number: AU-PFIZER INC-AU-WYE-G06431410

PATIENT
  Age: 29 Year
  Sex: Male

DRUGS (5)
  1. EFFEXOR XR [Suspect]
     Dosage: 150MG DAILY
     Dates: start: 20100101, end: 20100101
  2. EFFEXOR XR [Suspect]
     Dosage: 225MG DAILY
     Dates: start: 20100101, end: 20100101
  3. EFFEXOR XR [Suspect]
     Dosage: ABOVE 225MG DAILY
     Dates: start: 20100101, end: 20100401
  4. EFFEXOR XR [Suspect]
     Indication: DEPRESSION
     Dosage: 37.5 MG, UNK
     Dates: start: 20100312, end: 20100101
  5. EFFEXOR XR [Suspect]
     Dosage: 300MG DAILY
     Dates: start: 20100401, end: 20100601

REACTIONS (6)
  - COMPULSIVE SEXUAL BEHAVIOUR [None]
  - NAUSEA [None]
  - MUSCLE TIGHTNESS [None]
  - PATHOLOGICAL GAMBLING [None]
  - BRUXISM [None]
  - SEDATION [None]
